FAERS Safety Report 11275112 (Version 3)
Quarter: 2017Q1

REPORT INFORMATION
  Report Type: Spontaneous
  Country: FR (occurrence: FR)
  Receive Date: 20150714
  Receipt Date: 20170228
  Transmission Date: 20170428
  Serious: Yes (Life-Threatening, Hospitalization, Other)
  Sender: FDA-Public Use
  Company Number: FR-H14001-15-01156

PATIENT
  Age: 55 Year
  Sex: Female
  Weight: 50.08 kg

DRUGS (10)
  1. ARACYTINE [Suspect]
     Active Substance: CYTARABINE
     Indication: ACUTE MYELOID LEUKAEMIA
     Route: 042
     Dates: start: 20080620, end: 20080626
  2. CERUBIDINE [Suspect]
     Active Substance: DAUNORUBICIN HYDROCHLORIDE
     Indication: ACUTE MYELOID LEUKAEMIA
     Route: 041
     Dates: start: 20080620, end: 20080622
  3. SEROPRAM [Concomitant]
     Active Substance: CITALOPRAM HYDROBROMIDE
     Indication: PRODUCT USED FOR UNKNOWN INDICATION
     Route: 065
  4. MYLOTARG [Suspect]
     Active Substance: GEMTUZUMAB OZOGAMICIN
     Indication: ACUTE MYELOID LEUKAEMIA
     Route: 041
     Dates: start: 20080620, end: 20080626
  5. LEVOTHYROX [Concomitant]
     Active Substance: LEVOTHYROXINE
     Indication: PRODUCT USED FOR UNKNOWN INDICATION
     Route: 065
  6. CERUBIDINE [Suspect]
     Active Substance: DAUNORUBICIN HYDROCHLORIDE
     Route: 041
     Dates: start: 20080916, end: 20080917
  7. MYLOTARG [Suspect]
     Active Substance: GEMTUZUMAB OZOGAMICIN
     Route: 041
     Dates: start: 20080916, end: 20080916
  8. ARACYTINE [Suspect]
     Active Substance: CYTARABINE
     Route: 041
     Dates: start: 20080916, end: 20080919
  9. ATARAX [Concomitant]
     Active Substance: HYDROXYZINE HYDROCHLORIDE
     Indication: PRODUCT USED FOR UNKNOWN INDICATION
     Route: 065
  10. ZELITREX [Concomitant]
     Active Substance: VALACYCLOVIR HYDROCHLORIDE
     Indication: PRODUCT USED FOR UNKNOWN INDICATION
     Route: 065

REACTIONS (14)
  - Streptococcal sepsis [Recovered/Resolved]
  - Sinus node dysfunction [Unknown]
  - Head injury [Recovered/Resolved]
  - Thrombocytopenia [Unknown]
  - Mucosal inflammation [Unknown]
  - Fall [Recovered/Resolved]
  - Respiratory distress [Recovered/Resolved]
  - Muscle spasms [Unknown]
  - Nausea [Unknown]
  - Altered state of consciousness [Recovered/Resolved]
  - Bone marrow failure [Unknown]
  - Sinus bradycardia [Unknown]
  - Toxic skin eruption [Unknown]
  - Septic shock [Recovered/Resolved]

NARRATIVE: CASE EVENT DATE: 2008
